FAERS Safety Report 5223012-7 (Version None)
Quarter: 2007Q1

REPORT INFORMATION
  Report Type: 
  Country: None (occurrence: None)
  Receive Date: 20070129
  Receipt Date: 20070117
  Transmission Date: 20070707
  Serious: Yes (Other)
  Sender: FDA-Public Use
  Company Number: US-PFIZER INC-2006149770

PATIENT
  Age: 50 Year
  Sex: Female
  Weight: 91.2 kg

DRUGS (2)
  1. LYRICA [Suspect]
     Indication: NEUROPATHY PERIPHERAL
     Dosage: DAILY DOSE:400MG
     Route: 048
  2. LYRICA [Suspect]
     Indication: ANXIETY

REACTIONS (4)
  - AFFECT LABILITY [None]
  - DELIRIUM [None]
  - IRRITABILITY [None]
  - MEDICATION ERROR [None]
